FAERS Safety Report 24414872 (Version 1)
Quarter: 2024Q4

REPORT INFORMATION
  Report Type: Spontaneous
  Country: PK (occurrence: PK)
  Receive Date: 20241009
  Receipt Date: 20241009
  Transmission Date: 20250115
  Serious: Yes (Hospitalization, Other)
  Sender: GLAND PHARMA
  Company Number: PK-GLANDPHARMA-PK-2024GLNLIT00812

PATIENT
  Sex: Male

DRUGS (1)
  1. MELPHALAN HYDROCHLORIDE [Suspect]
     Active Substance: MELPHALAN HYDROCHLORIDE
     Indication: Retinoblastoma
     Route: 013

REACTIONS (3)
  - Orbital oedema [Recovered/Resolved]
  - Pancytopenia [Unknown]
  - Product use in unapproved indication [Unknown]
